FAERS Safety Report 9111824 (Version 1)
Quarter: 2013Q1

REPORT INFORMATION
  Report Type: Spontaneous
  Country: US (occurrence: US)
  Receive Date: 20130219
  Receipt Date: 20130219
  Transmission Date: 20140127
  Serious: No
  Sender: FDA-Public Use
  Company Number: US-BRISTOL-MYERS SQUIBB COMPANY-16395469

PATIENT
  Age: 68 Year
  Sex: Male

DRUGS (2)
  1. ORENCIA [Suspect]
     Indication: RHEUMATOID ARTHRITIS
     Route: 058
     Dates: start: 2011, end: 20120224
  2. METHOTREXATE [Suspect]

REACTIONS (3)
  - Rheumatoid arthritis [Unknown]
  - Insomnia [Unknown]
  - Drug ineffective [Unknown]
